FAERS Safety Report 24280929 (Version 1)
Quarter: 2024Q3

REPORT INFORMATION
  Report Type: Spontaneous
  Country: BG (occurrence: BG)
  Receive Date: 20240904
  Receipt Date: 20240904
  Transmission Date: 20241017
  Serious: Yes (Other)
  Sender: SANDOZ
  Company Number: BG-NOVPHSZ-PHHY2018BG064336

PATIENT
  Age: 27 Year
  Sex: Male

DRUGS (14)
  1. CYTARABINE [Suspect]
     Active Substance: CYTARABINE
     Indication: Prophylaxis
     Dosage: UNK UNK, CYCLIC
     Route: 037
     Dates: start: 201602, end: 201603
  2. CYTARABINE [Suspect]
     Active Substance: CYTARABINE
     Dosage: UNK UNK, CYCLIC
     Route: 037
     Dates: start: 201603, end: 201604
  3. CYTARABINE [Suspect]
     Active Substance: CYTARABINE
     Dosage: UNK UNK, CYCLIC
     Route: 065
     Dates: start: 201602, end: 201603
  4. CYTARABINE [Suspect]
     Active Substance: CYTARABINE
     Dosage: UNK UNK, CYCLIC
     Route: 065
     Dates: start: 201603, end: 201604
  5. FILGRASTIM [Suspect]
     Active Substance: FILGRASTIM
     Indication: Prophylaxis
     Dosage: UNK UNK, CYCLIC
     Route: 065
     Dates: start: 201602, end: 201603
  6. FILGRASTIM [Suspect]
     Active Substance: FILGRASTIM
     Dosage: UNK, CYCLIC
     Route: 065
     Dates: start: 201603, end: 201604
  7. FLUDARABINE [Suspect]
     Active Substance: FLUDARABINE PHOSPHATE
     Indication: Prophylaxis
     Dosage: UNK UNK, CYCLIC
     Route: 065
     Dates: start: 201602, end: 201603
  8. FLUDARABINE [Suspect]
     Active Substance: FLUDARABINE PHOSPHATE
     Dosage: UNK UNK, CYCLIC
     Route: 065
     Dates: start: 201603, end: 201604
  9. GRANULOCYTE COLONY-STIMULATING FACTOR NOS [Suspect]
     Active Substance: GRANULOCYTE COLONY-STIMULATING FACTOR NOS
     Indication: Prophylaxis
     Dosage: UNK UNK, CYCLIC
     Route: 065
     Dates: start: 201602, end: 201603
  10. GRANULOCYTE COLONY-STIMULATING FACTOR NOS [Suspect]
     Active Substance: GRANULOCYTE COLONY-STIMULATING FACTOR NOS
     Dosage: UNK UNK, CYCLIC
     Route: 065
     Dates: start: 201603, end: 201604
  11. IDARUBICIN HYDROCHLORIDE [Suspect]
     Active Substance: IDARUBICIN HYDROCHLORIDE
     Indication: Prophylaxis
     Dosage: UNK UNK, CYCLIC
     Route: 065
     Dates: start: 201602, end: 201603
  12. IDARUBICIN HYDROCHLORIDE [Suspect]
     Active Substance: IDARUBICIN HYDROCHLORIDE
     Dosage: UNK UNK, CYCLIC
     Route: 065
     Dates: start: 201603, end: 201604
  13. METHOTREXATE [Suspect]
     Active Substance: METHOTREXATE
     Indication: Prophylaxis
     Dosage: UNK UNK, CYCLIC
     Route: 037
     Dates: start: 201602, end: 201603
  14. METHOTREXATE [Suspect]
     Active Substance: METHOTREXATE
     Dosage: UNK UNK, CYCLIC
     Route: 037
     Dates: start: 201603, end: 201604

REACTIONS (2)
  - Haematotoxicity [Unknown]
  - Febrile neutropenia [Unknown]
